FAERS Safety Report 9761256 (Version 1)
Quarter: 2013Q4

REPORT INFORMATION
  Report Type: Spontaneous
  Country: DE (occurrence: None)
  Receive Date: 20131212
  Receipt Date: 20131212
  Transmission Date: 20140711
  Serious: Yes (Other)
  Sender: FDA-Public Use
  Company Number: 1312-1554

PATIENT
  Age: 83 Year
  Sex: Male
  Weight: 75 kg

DRUGS (4)
  1. EYLEA (AFLIBERCEPT) (INJECTION) (AFLIBERCEPT) [Suspect]
     Indication: AGE-RELATED MACULAR DEGENERATION
     Dosage: 1 IN 1 M, INTRAOCULAR
     Route: 031
     Dates: start: 201306
  2. NEVANAC (NEPAFENAC) [Concomitant]
  3. CETROLAC (KETOROLAC TROMETHAMINE) [Concomitant]
  4. LACRIMA PLUS (DEXTRAN) [Concomitant]

REACTIONS (1)
  - Eye haemorrhage [None]
